FAERS Safety Report 9164776 (Version 1)
Quarter: 2013Q1

REPORT INFORMATION
  Report Type: Spontaneous
  Country: US (occurrence: US)
  Receive Date: 20130315
  Receipt Date: 20130315
  Transmission Date: 20140127
  Serious: No
  Sender: FDA-Public Use
  Company Number: US-PFIZER INC-2013083976

PATIENT
  Age: 66 Year
  Sex: Female
  Weight: 113.38 kg

DRUGS (12)
  1. NEURONTIN [Suspect]
     Indication: NEUROPATHY PERIPHERAL
     Dosage: 1200 MG(TWO 600MG), 4X/DAY
     Route: 048
     Dates: start: 1999
  2. LEVOTHYROXINE [Concomitant]
     Indication: HYPOTHYROIDISM
     Dosage: UNK
  3. LISINOPRIL [Concomitant]
     Indication: HYPERTENSION
     Dosage: UNK
  4. METOPROLOL [Concomitant]
     Indication: HYPERTENSION
     Dosage: UNK
  5. LASIX [Concomitant]
     Dosage: UNK
  6. WARFARIN [Concomitant]
     Dosage: 4 MG, 1X/DAY
  7. CALCIUM WITH VITAMIN D [Concomitant]
     Dosage: UNK, 1X/DAY
  8. TEMAZEPAM [Concomitant]
     Dosage: UNK
  9. HYDROCODONE [Concomitant]
     Dosage: UNK
  10. NITROQUICK [Concomitant]
     Dosage: UNK, AS NEEDED
  11. PREDNISONE [Concomitant]
     Dosage: 10 MG, 1X/DAY
  12. OXYGEN [Concomitant]
     Dosage: UNK

REACTIONS (2)
  - Drug ineffective [Unknown]
  - Intentional drug misuse [Unknown]
